FAERS Safety Report 10167016 (Version 1)
Quarter: 2014Q2

REPORT INFORMATION
  Report Type: Spontaneous
  Country: EE (occurrence: EE)
  Receive Date: 20140512
  Receipt Date: 20140512
  Transmission Date: 20141212
  Serious: Yes (Other)
  Sender: FDA-Public Use
  Company Number: EE-BAXTER-2014BAX022830

PATIENT
  Sex: Male
  Weight: 90 kg

DRUGS (5)
  1. KIOVIG 100 MG/ML SKIDUMS INFUZIJAM [Suspect]
     Indication: CHRONIC INFLAMMATORY DEMYELINATING POLYRADICULONEUROPATHY
     Route: 042
     Dates: start: 20130729, end: 20130802
  2. KIOVIG 100 MG/ML SKIDUMS INFUZIJAM [Suspect]
     Indication: OFF LABEL USE
  3. HUMALOG [Concomitant]
     Indication: TYPE 2 DIABETES MELLITUS
     Dosage: 4-6 IU
     Route: 058
  4. MICARDIS [Concomitant]
     Indication: HYPERTENSION
     Route: 048
  5. LANTUS [Concomitant]
     Indication: TYPE 2 DIABETES MELLITUS
     Route: 058

REACTIONS (2)
  - Eczema [Not Recovered/Not Resolved]
  - Exfoliative rash [Not Recovered/Not Resolved]
